FAERS Safety Report 9067248 (Version 1)
Quarter: 2013Q1

REPORT INFORMATION
  Report Type: Report from Study
  Country: US (occurrence: US)
  Receive Date: 20130131
  Receipt Date: 20130131
  Transmission Date: 20140127
  Serious: No
  Sender: FDA-Public Use
  Company Number: US-ABBOTT-12P-163-0921638-00

PATIENT
  Age: 30 Year
  Sex: Male

DRUGS (4)
  1. HUMIRA 40 MG/0.8 ML PEN [Suspect]
     Indication: CROHN^S DISEASE
     Dosage: AS DIRECTED BY PHYSICIAN
     Dates: start: 201007
  2. UNSPECIFIED INGREDIENT [Suspect]
     Indication: PRODUCT USED FOR UNKNOWN INDICATION
  3. UNSPECIFIED INGREDIENT [Suspect]
     Indication: PRODUCT USED FOR UNKNOWN INDICATION
  4. VITAMIN D PILLS [Concomitant]
     Indication: PRODUCT USED FOR UNKNOWN INDICATION

REACTIONS (6)
  - Fatigue [Not Recovered/Not Resolved]
  - Vitamin B12 decreased [Unknown]
  - Abdominal pain upper [Unknown]
  - Device malfunction [Unknown]
  - Somnolence [Not Recovered/Not Resolved]
  - Mood altered [Not Recovered/Not Resolved]
